FAERS Safety Report 4919084-7 (Version None)
Quarter: 2006Q1

REPORT INFORMATION
  Report Type: 
  Country: None (occurrence: None)
  Receive Date: 20060222
  Receipt Date: 20060213
  Transmission Date: 20060701
  Serious: Yes (Life-Threatening, Hospitalization, Other)
  Sender: FDA-Public Use
  Company Number: JP-JNJFOC-20051205299

PATIENT
  Sex: Male
  Weight: 42 kg

DRUGS (9)
  1. REMICADE [Suspect]
     Indication: RHEUMATOID ARTHRITIS
     Route: 042
  2. RHEUMATREX [Suspect]
     Indication: RHEUMATOID ARTHRITIS
     Dosage: START DATE: UNKNOWN
     Route: 048
  3. PREDNISOLONE [Suspect]
     Indication: RHEUMATOID ARTHRITIS
     Dosage: ON SUNDAY, TUESDAY, THURSDAY, SATURDAY  START DATE: UNKNOWN
     Route: 048
  4. PREDNISOLONE [Suspect]
     Dosage: ON MONDAY, WEDNESDAY, FRIDAY          START DATE: UNKNOWN
     Route: 048
  5. THEO-DUR [Suspect]
     Indication: EMPHYSEMA
     Dosage: START DATE: UNKNOWN
     Route: 048
  6. OMEPRAL [Suspect]
     Dosage: START DATE: UNKNOWN
     Route: 048
  7. MUCODYNE [Suspect]
     Indication: EMPHYSEMA
     Dosage: START DATE: UNKNOWN
     Route: 048
  8. MUCOSOLVAN [Suspect]
     Indication: EMPHYSEMA
     Dosage: START DATE: UNKNOWN
     Route: 048
  9. LASIX [Suspect]
     Dosage: START DATE: UNKNOWN
     Route: 048

REACTIONS (4)
  - ATRIAL FIBRILLATION [None]
  - BLOOD PRESSURE DECREASED [None]
  - ESSENTIAL HYPERTENSION [None]
  - INFUSION RELATED REACTION [None]
